FAERS Safety Report 10160181 (Version 2)
Quarter: 2014Q2

REPORT INFORMATION
  Report Type: Report from Study
  Country: DE (occurrence: DE)
  Receive Date: 20140508
  Receipt Date: 20140607
  Transmission Date: 20141212
  Serious: Yes (Hospitalization)
  Sender: FDA-Public Use
  Company Number: PHHY2014DE055550

PATIENT
  Age: 63 Year
  Sex: Female

DRUGS (5)
  1. GILENYA [Suspect]
     Indication: MULTIPLE SCLEROSIS
     Dosage: 0.5 MG, QD
     Route: 048
     Dates: start: 20130602, end: 20140210
  2. BISOPROLOL [Concomitant]
     Dosage: 5 MG, UNK
     Route: 048
  3. RAMIPRIL [Concomitant]
     Dosage: 7.5 MG, UNK
     Route: 048
  4. HCT [Concomitant]
     Dosage: 25 MG, UNK
     Route: 048
  5. CIPRALEX [Concomitant]
     Dosage: 20 MG, UNK
     Route: 048

REACTIONS (2)
  - Colitis [Recovering/Resolving]
  - Hypertension [Recovering/Resolving]
